FAERS Safety Report 21360632 (Version 1)
Quarter: 2022Q3

REPORT INFORMATION
  Report Type: Other
  Country: ZA (occurrence: None)
  Receive Date: 20220921
  Receipt Date: 20220921
  Transmission Date: 20221027
  Serious: Yes (Other)
  Sender: FDA-Public Use
  Company Number: ZA-ROCHE-3178795

PATIENT
  Sex: Male

DRUGS (2)
  1. OCREVUS [Suspect]
     Active Substance: OCRELIZUMAB
     Indication: Relapsing-remitting multiple sclerosis
     Dosage: THEN 600 MG ONCE IN EVERY 6 MONTHS
     Route: 041
     Dates: start: 20210726
  2. AVONEX [Concomitant]
     Active Substance: INTERFERON BETA-1A
     Dates: start: 2018

REACTIONS (9)
  - Ophthalmoplegia [Unknown]
  - Dysarthria [Unknown]
  - Friedreich^s ataxia [Unknown]
  - Muscular weakness [Unknown]
  - Intention tremor [Unknown]
  - Vibration syndrome [Unknown]
  - Ataxia [Unknown]
  - Multiple sclerosis relapse [Unknown]
  - Muscle spasticity [Unknown]
